FAERS Safety Report 5624689-4 (Version None)
Quarter: 2008Q1

REPORT INFORMATION
  Report Type: 
  Country: None (occurrence: None)
  Receive Date: 20080213
  Receipt Date: 20080205
  Transmission Date: 20080703
  Serious: Yes (Other)
  Sender: FDA-Public Use
  Company Number: B0498742A

PATIENT
  Age: 56 Year
  Sex: Female
  Weight: 50 kg

DRUGS (4)
  1. VENTOLIN [Suspect]
     Indication: ASTHMA
     Route: 055
  2. IMOVANE [Concomitant]
     Indication: SLEEP DISORDER
     Route: 065
  3. SUMATRIPTAN SUCCINATE [Concomitant]
     Indication: MIGRAINE
     Route: 065
  4. FLIXOTIDE [Concomitant]
     Indication: ASTHMA PROPHYLAXIS
     Dosage: 125MCG THREE TIMES PER DAY
     Route: 055

REACTIONS (7)
  - ASTHMA [None]
  - DRUG INEFFECTIVE [None]
  - DYSGEUSIA [None]
  - DYSPNOEA [None]
  - NAUSEA [None]
  - PHARMACEUTICAL PRODUCT COMPLAINT [None]
  - WHEEZING [None]
